FAERS Safety Report 5737331-9 (Version None)
Quarter: 2008Q2

REPORT INFORMATION
  Report Type: 
  Country: None (occurrence: None)
  Receive Date: 20080513
  Receipt Date: 20080513
  Transmission Date: 20081010
  Serious: Yes (Hospitalization)
  Sender: FDA-Public Use
  Company Number: None

PATIENT
  Age: 80 Year
  Sex: Female

DRUGS (1)
  1. DIGOXIN [Suspect]
     Indication: CARDIAC DISORDER
     Dosage: ONE DAILY PO/OVER 1 YEAR
     Route: 048

REACTIONS (6)
  - CHEST PAIN [None]
  - DIZZINESS [None]
  - DRUG LEVEL INCREASED [None]
  - DYSPNOEA [None]
  - INCOHERENT [None]
  - PHARMACEUTICAL PRODUCT COMPLAINT [None]
